FAERS Safety Report 10480718 (Version 1)
Quarter: 2014Q3

REPORT INFORMATION
  Report Type: Spontaneous
  Country: CN (occurrence: None)
  Receive Date: 20140925
  Receipt Date: 20140925
  Transmission Date: 20150326
  Serious: Yes (Hospitalization)
  Sender: FDA-Public Use
  Company Number: 2014AMD00098

PATIENT
  Age: 0 Day
  Weight: 2.5 kg

DRUGS (3)
  1. ZENTEL (ALBENDAZOLE) TABLET [Suspect]
     Active Substance: ALBENDAZOLE
     Route: 064
     Dates: start: 20131127, end: 20131127
  2. CHINESE MEDICATION LIU WEI DI HUANG [Suspect]
     Active Substance: UNSPECIFIED INGREDIENT
     Route: 064
     Dates: start: 20131102, end: 20131127
  3. CHINESE MEDICATION ZHI BAI DI HUANG [Suspect]
     Active Substance: UNSPECIFIED INGREDIENT
     Route: 064
     Dates: start: 20131102, end: 20131127

REACTIONS (3)
  - Crying [None]
  - Premature baby [None]
  - Maternal drugs affecting foetus [None]

NARRATIVE: CASE EVENT DATE: 20140628
